FAERS Safety Report 10022563 (Version 1)
Quarter: 2014Q1

REPORT INFORMATION
  Report Type: Spontaneous
  Country: US (occurrence: US)
  Receive Date: 20140319
  Receipt Date: 20140319
  Transmission Date: 20141002
  Serious: Yes (Other)
  Sender: FDA-Public Use
  Company Number: US-ELI_LILLY_AND_COMPANY-US201403002975

PATIENT
  Sex: Male

DRUGS (1)
  1. HUMALOG LISPRO [Suspect]
     Indication: DIABETES MELLITUS
     Dosage: UNK, OTHER
     Route: 065
     Dates: start: 2008

REACTIONS (3)
  - Hypoglycaemic unconsciousness [Recovered/Resolved]
  - Incorrect dosage administered [Unknown]
  - Underdose [Unknown]
